FAERS Safety Report 21680890 (Version 1)
Quarter: 2022Q4

REPORT INFORMATION
  Report Type: Spontaneous
  Country: US (occurrence: None)
  Receive Date: 20221202
  Receipt Date: 20221202
  Transmission Date: 20230113
  Serious: Yes (Hospitalization)
  Sender: FDA-Public Use
  Company Number: None

PATIENT
  Age: 71 Year
  Sex: Male
  Weight: 101.3 kg

DRUGS (1)
  1. DARATUMUMAB\HYALURONIDASE-FIHJ [Suspect]
     Active Substance: DARATUMUMAB\HYALURONIDASE-FIHJ
     Dates: end: 20221103

REACTIONS (7)
  - Back pain [None]
  - Muscular weakness [None]
  - Hypoaesthesia [None]
  - Paraesthesia [None]
  - Hypoaesthesia [None]
  - Gait disturbance [None]
  - Compression fracture [None]

NARRATIVE: CASE EVENT DATE: 20221110
